FAERS Safety Report 25074211 (Version 1)
Quarter: 2025Q1

REPORT INFORMATION
  Report Type: Spontaneous
  Country: BE (occurrence: BE)
  Receive Date: 20250313
  Receipt Date: 20250313
  Transmission Date: 20250409
  Serious: Yes (Death, Hospitalization, Other)
  Sender: AMGEN
  Company Number: BE-AMGEN-BELSP2025044203

PATIENT
  Age: 72 Year
  Sex: Male

DRUGS (3)
  1. CARFILZOMIB [Suspect]
     Active Substance: CARFILZOMIB
     Indication: Plasma cell myeloma
     Route: 065
     Dates: start: 202210, end: 202301
  2. DEXAMETHASONE [Suspect]
     Active Substance: DEXAMETHASONE
     Indication: Plasma cell myeloma
     Route: 065
     Dates: start: 202210, end: 202301
  3. POMALIDOMIDE [Concomitant]
     Active Substance: POMALIDOMIDE
     Indication: Plasma cell myeloma
     Route: 065
     Dates: start: 202301

REACTIONS (11)
  - Death [Fatal]
  - Bronchopulmonary aspergillosis [Unknown]
  - COVID-19 [Unknown]
  - Candida sepsis [Unknown]
  - Nocardiosis [Unknown]
  - Brain abscess [Recovered/Resolved]
  - Pneumonia bacterial [Unknown]
  - Influenza [Unknown]
  - Plasma cell myeloma [Unknown]
  - Urinary tract infection [Unknown]
  - Hypogammaglobulinaemia [Unknown]

NARRATIVE: CASE EVENT DATE: 20221001
